FAERS Safety Report 5363612-7 (Version None)
Quarter: 2007Q2

REPORT INFORMATION
  Report Type: 
  Country: None (occurrence: None)
  Receive Date: 20070620
  Receipt Date: 20070618
  Transmission Date: 20071010
  Serious: Yes (Other)
  Sender: FDA-Public Use
  Company Number: B0475627A

PATIENT
  Age: 2 Year

DRUGS (2)
  1. AMOXIL [Suspect]
     Indication: EAR INFECTION
     Route: 065
  2. TEGRETOL [Concomitant]

REACTIONS (3)
  - ORAL MUCOSAL BLISTERING [None]
  - STEVENS-JOHNSON SYNDROME [None]
  - SWELLING [None]
